FAERS Safety Report 7980025-X (Version None)
Quarter: 2011Q4

REPORT INFORMATION
  Report Type: 
  Country: None (occurrence: None)
  Receive Date: 20111214
  Receipt Date: 20111206
  Transmission Date: 20120403
  Serious: Yes (Other)
  Sender: FDA-Public Use
  Company Number: PHEH2011US00601

PATIENT
  Sex: Female

DRUGS (5)
  1. TASIGNA [Suspect]
     Indication: CHRONIC MYELOID LEUKAEMIA
     Dosage: 300 MG, BID
     Route: 048
  2. TASIGNA [Suspect]
     Dosage: 150 MG, BID
     Route: 048
  3. LISINOPRIL [Concomitant]
  4. SPRYCEL [Suspect]
  5. MULTI-VITAMINS [Concomitant]

REACTIONS (4)
  - PANCREATIC ENZYMES INCREASED [None]
  - PANCREATITIS [None]
  - CYST [None]
  - IMPAIRED WORK ABILITY [None]
